FAERS Safety Report 5179680-1 (Version None)
Quarter: 2006Q4

REPORT INFORMATION
  Report Type: 
  Country: None (occurrence: None)
  Receive Date: 20061211
  Receipt Date: 20061130
  Transmission Date: 20070319
  Serious: Yes (Hospitalization, Congenital Anomaly)
  Sender: FDA-Public Use
  Company Number: S06-USA-02720-02

PATIENT
  Sex: Female
  Weight: 2.8622 kg

DRUGS (2)
  1. LEXAPRO [Suspect]
     Dosage: 10 MG QD TRANSPLACENTAL
     Route: 064
     Dates: start: 20060304, end: 20061114
  2. PRENATAL VITAMIN (NOS) [Concomitant]

REACTIONS (4)
  - ATRIOVENTRICULAR SEPTAL DEFECT [None]
  - CAESAREAN SECTION [None]
  - CARDIAC FAILURE CONGESTIVE [None]
  - DRUG EXPOSURE DURING PREGNANCY [None]
